FAERS Safety Report 23680546 (Version 5)
Quarter: 2025Q3

REPORT INFORMATION
  Report Type: Report from Study
  Country: BR (occurrence: BR)
  Receive Date: 20240328
  Receipt Date: 20250917
  Transmission Date: 20251021
  Serious: Yes (Other)
  Sender: TAKEDA
  Company Number: BR-TAKEDA-BR201828506

PATIENT
  Sex: Female
  Weight: 53 kg

DRUGS (9)
  1. ICATIBANT [Suspect]
     Active Substance: ICATIBANT ACETATE
     Indication: Hereditary angioedema
  2. ICATIBANT [Suspect]
     Active Substance: ICATIBANT ACETATE
     Dosage: 300 MILLIGRAM, 2/MONTH
     Dates: start: 20230117
  3. TAKHZYRO [Suspect]
     Active Substance: LANADELUMAB-FLYO
     Indication: Hereditary angioedema
  4. TAKHZYRO [Suspect]
     Active Substance: LANADELUMAB-FLYO
     Dosage: UNK, Q4WEEKS
     Dates: start: 20230109
  5. TAKHZYRO [Suspect]
     Active Substance: LANADELUMAB-FLYO
     Dosage: UNK, 2/MONTH
     Dates: start: 2023
  6. LANADELUMAB [Suspect]
     Active Substance: LANADELUMAB
     Indication: Product used for unknown indication
     Dosage: UNK UNK, MONTHLY
     Dates: start: 20230117
  7. CONESTAT ALFA [Suspect]
     Active Substance: CONESTAT ALFA
     Indication: Product used for unknown indication
     Dosage: UNK, MONTHLY
  8. TRANSAMIN [Concomitant]
     Active Substance: TRANEXAMIC ACID
     Indication: Product used for unknown indication
  9. BERINERT [Concomitant]
     Active Substance: HUMAN C1-ESTERASE INHIBITOR
     Indication: Product used for unknown indication

REACTIONS (15)
  - Intentional self-injury [Unknown]
  - Depression [Unknown]
  - Anxiety [Unknown]
  - Loss of personal independence in daily activities [Unknown]
  - Depressed mood [Unknown]
  - Pain [Recovered/Resolved]
  - Treatment failure [Unknown]
  - Hereditary angioedema [Recovered/Resolved]
  - Off label use [Unknown]
  - Inappropriate schedule of product administration [Unknown]
  - Product supply issue [Unknown]
  - Treatment noncompliance [Unknown]
  - Product use issue [Unknown]
  - Product distribution issue [Unknown]
  - Product availability issue [Recovered/Resolved]

NARRATIVE: CASE EVENT DATE: 20240101
